FAERS Safety Report 5663290-3 (Version None)
Quarter: 2008Q1

REPORT INFORMATION
  Report Type: 
  Country: None (occurrence: None)
  Receive Date: 20080313
  Receipt Date: 20080304
  Transmission Date: 20080703
  Serious: Yes (Hospitalization)
  Sender: FDA-Public Use
  Company Number: FR-PFIZER INC-2008021412

PATIENT
  Sex: Female

DRUGS (5)
  1. CELEBREX [Interacting]
  2. ALDACTAZIDE [Suspect]
  3. CANDESARTAN CILEXETIL [Concomitant]
  4. VERAPAMIL [Concomitant]
  5. PRAVASTATIN [Concomitant]

REACTIONS (5)
  - BRADYCARDIA [None]
  - DRUG INTERACTION [None]
  - HYPOKALAEMIA [None]
  - LOSS OF CONSCIOUSNESS [None]
  - RENAL FAILURE [None]
